FAERS Safety Report 20653925 (Version 4)
Quarter: 2022Q2

REPORT INFORMATION
  Report Type: Spontaneous
  Country: US (occurrence: US)
  Receive Date: 20220330
  Receipt Date: 20220618
  Transmission Date: 20220721
  Serious: No
  Sender: FDA-Public Use
  Company Number: US-SA-SAC20220325000939

PATIENT
  Age: 63 Year
  Sex: Male

DRUGS (2)
  1. DUPIXENT [Suspect]
     Active Substance: DUPILUMAB
     Indication: Dermatitis atopic
     Dosage: 600 MG, 1X
     Route: 058
     Dates: start: 20220312, end: 20220312
  2. DUPIXENT [Suspect]
     Active Substance: DUPILUMAB
     Dosage: 300 MG, QOW
     Route: 058

REACTIONS (9)
  - Skin ulcer [Not Recovered/Not Resolved]
  - Impaired healing [Recovering/Resolving]
  - Skin irritation [Not Recovered/Not Resolved]
  - Eczema [Unknown]
  - Skin hyperpigmentation [Recovered/Resolved]
  - Rash [Recovered/Resolved]
  - Dermatitis atopic [Recovered/Resolved]
  - Therapeutic response decreased [Unknown]
  - Drug ineffective [Unknown]

NARRATIVE: CASE EVENT DATE: 20220101
